FAERS Safety Report 20640738 (Version 2)
Quarter: 2022Q3

REPORT INFORMATION
  Report Type: Spontaneous
  Country: US (occurrence: US)
  Receive Date: 20220327
  Receipt Date: 20220714
  Transmission Date: 20221027
  Serious: No
  Sender: FDA-Public Use
  Company Number: US-SA-SAC20220322000626

PATIENT
  Age: 60 Year
  Sex: Male

DRUGS (1)
  1. ZANTAC [Suspect]
     Active Substance: RANITIDINE HYDROCHLORIDE
     Indication: Dyspepsia
     Dosage: UNK, DOSE/UNIT AND FREQUENCY: OTHER
     Dates: start: 201001, end: 201807

REACTIONS (1)
  - Haemochromatosis [Unknown]

NARRATIVE: CASE EVENT DATE: 20180805
